FAERS Safety Report 19474281 (Version 1)
Quarter: 2021Q2

REPORT INFORMATION
  Report Type: Spontaneous
  Country: BG (occurrence: BG)
  Receive Date: 20210629
  Receipt Date: 20210629
  Transmission Date: 20210717
  Serious: Yes (Death)
  Sender: FDA-Public Use
  Company Number: BG-PFIZER INC-2021719177

PATIENT
  Age: 51 Year
  Sex: Female
  Weight: 37 kg

DRUGS (1)
  1. LORLATINIB [Suspect]
     Active Substance: LORLATINIB
     Indication: NON-SMALL CELL LUNG CANCER
     Dosage: UNK
     Dates: start: 202011

REACTIONS (1)
  - Death [Fatal]

NARRATIVE: CASE EVENT DATE: 202106
